FAERS Safety Report 4786499-X (Version None)
Quarter: 2005Q3

REPORT INFORMATION
  Report Type: 
  Country: None (occurrence: None)
  Receive Date: 20050914
  Receipt Date: 20050209
  Transmission Date: 20060218
  Serious: Yes (Death)
  Sender: FDA-Public Use
  Company Number: 163-20785-05020200

PATIENT
  Age: 62 Year
  Sex: Male

DRUGS (8)
  1. THALOMID [Suspect]
     Indication: MULTIPLE MYELOMA
     Dosage: 50 MG, ORAL
     Route: 048
     Dates: start: 20040914
  2. LASIX [Concomitant]
  3. MS CONTIN [Concomitant]
  4. LOVASTATIN [Concomitant]
  5. ALLOPURINOL [Concomitant]
  6. XANAX [Concomitant]
  7. CARDURA [Concomitant]
  8. COLCHICINE [Concomitant]

REACTIONS (4)
  - DEATH [None]
  - DISEASE PROGRESSION [None]
  - FEELING ABNORMAL [None]
  - VISION BLURRED [None]
